FAERS Safety Report 6267263-1 (Version None)
Quarter: 2009Q3

REPORT INFORMATION
  Report Type: 
  Country: None (occurrence: None)
  Receive Date: 20090714
  Receipt Date: 20090702
  Transmission Date: 20100115
  Serious: Yes (Hospitalization)
  Sender: FDA-Public Use
  Company Number: JP-PFIZER INC-2009237726

PATIENT
  Age: 78 Year

DRUGS (5)
  1. ZOLOFT [Suspect]
     Indication: DEPRESSION
     Dosage: UNK
     Route: 048
     Dates: start: 20090517
  2. SOLANAX [Suspect]
     Route: 048
  3. SPIRONOLACTONE [Suspect]
     Route: 048
  4. MYSLEE [Concomitant]
     Route: 048
  5. ROHYPNOL [Concomitant]
     Route: 048

REACTIONS (3)
  - FALL [None]
  - HAEMATURIA [None]
  - HYPONATRAEMIA [None]
